FAERS Safety Report 5804349-7 (Version None)
Quarter: 2008Q3

REPORT INFORMATION
  Report Type: 
  Country: None (occurrence: None)
  Receive Date: 20080709
  Receipt Date: 20080630
  Transmission Date: 20090109
  Serious: Yes (Other)
  Sender: FDA-Public Use
  Company Number: US-ALLERGAN-0807934US

PATIENT
  Age: 67 Year
  Sex: Female

DRUGS (2)
  1. REFRESH TEARS [Suspect]
     Indication: DRY EYE
     Dosage: UNK, UNK
     Dates: start: 20080616, end: 20080625
  2. REFRESH P.M. [Suspect]
     Indication: DRY EYE
     Dates: start: 20080616, end: 20080625

REACTIONS (3)
  - EYE HAEMORRHAGE [None]
  - EYE SWELLING [None]
  - VISION BLURRED [None]
